FAERS Safety Report 7481385-9 (Version None)
Quarter: 2011Q2

REPORT INFORMATION
  Report Type: 
  Country: None (occurrence: None)
  Receive Date: 20110516
  Receipt Date: 20110516
  Transmission Date: 20111010
  Serious: Yes (Other)
  Sender: FDA-Public Use
  Company Number: US-ROXANE LABORATORIES, INC.-2011-DE-01356GD

PATIENT
  Sex: Female

DRUGS (2)
  1. PERCOCET [Suspect]
     Indication: PAIN
     Dosage: 7.5/500 (4 TABS PER DAY)
     Route: 048
  2. ORAMORPH SR [Suspect]
     Indication: PAIN
     Dosage: 30 MG

REACTIONS (1)
  - SLEEP APNOEA SYNDROME [None]
